FAERS Safety Report 6937809-6 (Version None)
Quarter: 2010Q3

REPORT INFORMATION
  Report Type: 
  Country: None (occurrence: None)
  Receive Date: 20100823
  Receipt Date: 20100823
  Transmission Date: 20110219
  Serious: Yes (Hospitalization)
  Sender: FDA-Public Use
  Company Number: None

PATIENT
  Age: 55 Year
  Sex: Male
  Weight: 110.22 kg

DRUGS (1)
  1. ARIPIPRAZOLE [Suspect]
     Indication: AFFECTIVE DISORDER
     Dosage: 10 MG EVERY DAY PO
     Route: 048
     Dates: start: 20090323, end: 20100809

REACTIONS (1)
  - AKATHISIA [None]
